FAERS Safety Report 14608205 (Version 1)
Quarter: 2018Q1

REPORT INFORMATION
  Report Type: Spontaneous
  Country: US (occurrence: US)
  Receive Date: 20180307
  Receipt Date: 20180307
  Transmission Date: 20180509
  Serious: Yes (Hospitalization, Other)
  Sender: FDA-Public Use
  Company Number: US-BAYER-2018-043860

PATIENT
  Age: 58 Year
  Sex: Male

DRUGS (4)
  1. TICAGRELOR. [Suspect]
     Active Substance: TICAGRELOR
  2. ACETYLSALICYLIC ACID({=100 MG) [Suspect]
     Active Substance: ASPIRIN
  3. APIXABAN [Suspect]
     Active Substance: APIXABAN
     Indication: ATRIAL FLUTTER
  4. EPTIFIBATIDE. [Suspect]
     Active Substance: EPTIFIBATIDE

REACTIONS (3)
  - Drug administration error [None]
  - Labelled drug-drug interaction medication error [None]
  - Gastrointestinal haemorrhage [None]
